FAERS Safety Report 7771343-9 (Version None)
Quarter: 2011Q3

REPORT INFORMATION
  Report Type: 
  Country: None (occurrence: None)
  Receive Date: 20110922
  Receipt Date: 20110907
  Transmission Date: 20111222
  Serious: Yes (Hospitalization, Disabling, Other)
  Sender: FDA-Public Use
  Company Number: US-WATSON-2011-14305

PATIENT
  Age: 43 Year
  Sex: Female
  Weight: 81.6 kg

DRUGS (8)
  1. LYRICA [Suspect]
     Indication: FIBROMYALGIA
     Dosage: 75 MG, BID
     Route: 065
     Dates: start: 20090101
  2. VICODIN [Suspect]
     Indication: PAIN
     Dosage: 750 MG
     Route: 065
     Dates: start: 20070101
  3. LISINOPRIL AND HYDROCHLOROTHIAZIDE [Suspect]
     Indication: HYPERTENSION
     Dosage: UNK
     Route: 065
     Dates: start: 20070101
  4. IBUPROFEN [Suspect]
     Indication: PAIN
     Dosage: 800 MG, 3 - 4 TIMES DAILY
     Route: 065
     Dates: start: 20070101
  5. ASPIRIN [Suspect]
     Indication: PRODUCT USED FOR UNKNOWN INDICATION
     Dosage: 81 MG, UNKNOWN
     Route: 065
     Dates: start: 20070101
  6. CELEXA [Suspect]
     Indication: DEPRESSION
     Dosage: 10 MG, UNKNOWN
     Route: 065
     Dates: start: 20080101
  7. XANAX [Suspect]
     Indication: ANXIETY
     Dosage: 10 MG, BID
     Route: 065
     Dates: start: 20090101
  8. SOMA [Suspect]
     Indication: PAIN
     Dosage: UNK
     Route: 065
     Dates: start: 20070101

REACTIONS (5)
  - FALL [None]
  - BLINDNESS UNILATERAL [None]
  - H1N1 INFLUENZA [None]
  - ANGIOPATHY [None]
  - TRANSIENT ISCHAEMIC ATTACK [None]
